FAERS Safety Report 5392290-6 (Version None)
Quarter: 2007Q3

REPORT INFORMATION
  Report Type: 
  Country: None (occurrence: None)
  Receive Date: 20070720
  Receipt Date: 20070706
  Transmission Date: 20080115
  Serious: Yes (Other)
  Sender: FDA-Public Use
  Company Number: US-AMGEN-US231128

PATIENT
  Sex: Female

DRUGS (5)
  1. ENBREL [Suspect]
     Indication: PSORIATIC ARTHROPATHY
     Route: 058
     Dates: start: 20050721, end: 20070627
  2. ENBREL [Suspect]
     Indication: PSORIASIS
  3. VERAPAMIL [Concomitant]
  4. POTASSIUM CHLORIDE [Concomitant]
  5. LORAZEPAM [Concomitant]

REACTIONS (8)
  - ALOPECIA [None]
  - FAECAL INCONTINENCE [None]
  - HAEMOGLOBIN DECREASED [None]
  - INJECTION SITE PAIN [None]
  - PALPITATIONS [None]
  - PYREXIA [None]
  - SCIATICA [None]
  - URTICARIA [None]
